FAERS Safety Report 8758758 (Version 2)
Quarter: 2012Q4

REPORT INFORMATION
  Report Type: Spontaneous
  Country: US (occurrence: None)
  Receive Date: 20120814
  Receipt Date: 20120919
  Transmission Date: 20130627
  Serious: Yes (Death)
  Sender: FDA-Public Use
  Company Number: DSA_58915_2012

PATIENT
  Age: 72 Year
  Sex: Male

DRUGS (1)
  1. XENAZINE 25 MG (NOT SPECIFIED) [Suspect]
     Indication: HUNTINGTON^S DISEASE
     Dosage: (1 tablet in AM; 1/2 tablet in PM)
     Route: 048
     Dates: start: 20100204, end: 20120625

REACTIONS (1)
  - Staphylococcal infection [None]
